FAERS Safety Report 5276068-X (Version None)
Quarter: 2007Q1

REPORT INFORMATION
  Report Type: 
  Country: None (occurrence: None)
  Receive Date: 20070321
  Receipt Date: 20061115
  Transmission Date: 20070707
  Serious: Yes (Hospitalization, Other)
  Sender: FDA-Public Use
  Company Number: 234523K06USA

PATIENT
  Age: 56 Year
  Sex: Male

DRUGS (5)
  1. REBIF [Suspect]
     Indication: MULTIPLE SCLEROSIS
     Dosage: 44 MCG, 3 IN 1 WEEKS, SUBCUTANEOUS
     Route: 058
     Dates: start: 20050708
  2. DITROPAN XL (OXYBUTYNIN /00538901/) [Concomitant]
  3. CITALOPRAM (CITALOPRAM /00582601/) [Concomitant]
  4. ASPIRIN [Concomitant]
  5. ALEVE [Concomitant]

REACTIONS (8)
  - ATONIC URINARY BLADDER [None]
  - GOUT [None]
  - HYPERCALCAEMIA [None]
  - KIDNEY INFECTION [None]
  - NEPHROLITHIASIS [None]
  - PANCYTOPENIA [None]
  - RENAL FAILURE [None]
  - STAPHYLOCOCCAL SEPSIS [None]
